FAERS Safety Report 7171424-7 (Version None)
Quarter: 2010Q4

REPORT INFORMATION
  Report Type: 
  Country: None (occurrence: None)
  Receive Date: 20101217
  Receipt Date: 20101208
  Transmission Date: 20110411
  Serious: Yes (Other)
  Sender: FDA-Public Use
  Company Number: GB-ASTRAZENECA-2010SE58118

PATIENT
  Sex: Female

DRUGS (1)
  1. ATENOLOL [Suspect]
     Route: 065

REACTIONS (1)
  - PSORIASIS [None]
